FAERS Safety Report 12307069 (Version 1)
Quarter: 2016Q2

REPORT INFORMATION
  Report Type: Spontaneous
  Country: US (occurrence: US)
  Receive Date: 20160426
  Receipt Date: 20160426
  Transmission Date: 20160815
  Serious: No
  Sender: FDA-Public Use
  Company Number: US-ALKERMES INC.-ALK-2016-000045

PATIENT

DRUGS (1)
  1. VIVITROL [Suspect]
     Active Substance: NALTREXONE
     Indication: DRUG DEPENDENCE
     Dosage: 380 MG, QMO
     Route: 030
     Dates: start: 20151116

REACTIONS (4)
  - Drug dose omission [Recovered/Resolved]
  - Drug dependence [Recovered/Resolved]
  - Euphoric mood [Unknown]
  - Drug abuse [Unknown]

NARRATIVE: CASE EVENT DATE: 201512
